FAERS Safety Report 7040140-4 (Version None)
Quarter: 2010Q4

REPORT INFORMATION
  Report Type: 
  Country: None (occurrence: None)
  Receive Date: 20101012
  Receipt Date: 20101001
  Transmission Date: 20110411
  Serious: Yes (Other)
  Sender: FDA-Public Use
  Company Number: PHHY2009FI21644

PATIENT
  Age: 58 Year
  Sex: Female

DRUGS (20)
  1. CYCLOSPORINE [Suspect]
     Indication: RENAL TRANSPLANT
     Dosage: 150 MG AND 175 MG EVERY OTHER DAY DIVIDED IN 2 DAILY DOSES
     Dates: start: 20030501
  2. CYCLOSPORINE [Interacting]
     Dosage: 150 MG DAILY
     Dates: start: 20061101
  3. CYCLOSPORINE [Interacting]
     Dosage: 125 MG DAILY
  4. ACETAZOLAMIDE [Interacting]
     Indication: GLAUCOMA
     Dosage: 125 MG, TID
     Dates: start: 20060801
  5. ALLOPURINOL [Concomitant]
     Indication: HYPERURICAEMIA
     Dosage: UNK
     Dates: start: 20060501
  6. PANTOPRAZOLE [Concomitant]
     Indication: GASTRODUODENITIS
     Dosage: 40 MG DAILY
     Dates: start: 20060901
  7. MYCOPHENOLATE MOFETIL [Concomitant]
     Indication: RENAL TRANSPLANT
     Dosage: UNK
  8. MYCOPHENOLATE MOFETIL [Concomitant]
     Dosage: 500 MG DAILY
  9. METHYLPREDNISOLONE [Concomitant]
     Indication: RENAL TRANSPLANT
     Dosage: UNK
  10. METHYLPREDNISOLONE [Concomitant]
     Indication: IMMUNOSUPPRESSION
  11. BISOPROLOL [Concomitant]
  12. FELODIPINE [Concomitant]
     Dosage: UNK
  13. TELMISARTAN [Concomitant]
  14. FUROSEMIDE [Concomitant]
  15. SIMVASTATIN [Concomitant]
  16. GABAPENTIN [Concomitant]
  17. INSULIN GLARGINE [Concomitant]
     Route: 058
  18. INSULIN ASPART [Concomitant]
     Route: 058
  19. TIMOLOL MALEATE [Concomitant]
     Indication: GLAUCOMA
     Route: 061
  20. IOPIDINE [Concomitant]
     Indication: GLAUCOMA
     Dosage: UNK

REACTIONS (10)
  - DRUG INTERACTION [None]
  - DYSPEPSIA [None]
  - GASTRODUODENITIS [None]
  - GLAUCOMA [None]
  - HEPATIC ENZYME INCREASED [None]
  - HYPERURICAEMIA [None]
  - IMMUNOSUPPRESSANT DRUG LEVEL INCREASED [None]
  - NAUSEA [None]
  - OESOPHAGITIS [None]
  - TREMOR [None]
